FAERS Safety Report 14264062 (Version 2)
Quarter: 2018Q1

REPORT INFORMATION
  Report Type: Report from Study
  Country: JP (occurrence: JP)
  Receive Date: 20171208
  Receipt Date: 20180223
  Transmission Date: 20180508
  Serious: Yes (Hospitalization)
  Sender: FDA-Public Use
  Company Number: JP-ASTRAZENECA-2017SF23325

PATIENT
  Age: 54 Year
  Sex: Female
  Weight: 49.3 kg

DRUGS (17)
  1. ANASTROZOLE. [Suspect]
     Active Substance: ANASTROZOLE
     Indication: BREAST CANCER STAGE IV
     Route: 048
     Dates: start: 20150928
  2. AZUNOL [Concomitant]
     Active Substance: SODIUM GUALENATE
     Indication: NASOPHARYNGITIS
     Dates: start: 20170227
  3. BUP-4 [Concomitant]
     Active Substance: PROPIVERINE
     Indication: NOCTURIA
     Dates: start: 20170818
  4. LOPEMIN [Concomitant]
     Active Substance: LOPERAMIDE HYDROCHLORIDE
     Indication: PROPHYLAXIS
     Dates: start: 20151103
  5. BUSCOPAN [Concomitant]
     Active Substance: BUTYLSCOPOLAMINE BROMIDE
     Indication: PROPHYLAXIS
     Dates: start: 20151103
  6. CYCLOSERINE. [Concomitant]
     Active Substance: CYCLOSERINE
     Indication: PUSTULAR PSORIASIS
     Dates: start: 20160127
  7. DIMEMORFAN PHOSPHATE [Concomitant]
     Active Substance: DIMEMORFAN PHOSPHATE
     Indication: NASOPHARYNGITIS
     Dates: start: 20160731
  8. CEFCAPENE [Concomitant]
     Active Substance: CEFCAPENE
     Indication: NASOPHARYNGITIS
     Dates: start: 20160805
  9. CALONAL [Concomitant]
     Active Substance: ACETAMINOPHEN
     Indication: INTERSTITIAL LUNG DISEASE
     Dates: start: 20171014
  10. LOXONIN [Concomitant]
     Active Substance: LOXOPROFEN SODIUM
     Indication: BACK PAIN
     Dates: start: 20171018
  11. 5-METHYLTETRAHYDROFOLATE;ASCORBIC ACID;BIOTIN [Concomitant]
     Indication: PUSTULAR PSORIASIS
     Dates: start: 2011
  12. TARAXACUM OFFICINALE [Concomitant]
     Active Substance: HERBALS\TARAXACUM OFFICINALE
     Indication: PUSTULAR PSORIASIS
     Dates: start: 2011
  13. GLYCYRRHIZIC ACID, AMMONIUM SALT [Concomitant]
     Indication: HEPATOBILIARY DISEASE
     Dates: start: 20160902
  14. GLYCYRRHIZIC ACID, AMMONIUM SALT [Concomitant]
     Indication: LIVER DISORDER
     Dates: start: 20160902
  15. INTENURSE [Concomitant]
     Indication: PERIARTHRITIS
     Dates: start: 20160929
  16. LOXOPROFEN [Concomitant]
     Active Substance: LOXOPROFEN
     Indication: ARTHRALGIA
     Dates: start: 20170503
  17. REFLEX [Concomitant]
     Active Substance: MIRTAZAPINE
     Indication: INSOMNIA
     Dates: start: 20150911

REACTIONS (1)
  - Interstitial lung disease [Recovered/Resolved]

NARRATIVE: CASE EVENT DATE: 20171023
